FAERS Safety Report 14690163 (Version 1)
Quarter: 2018Q1

REPORT INFORMATION
  Report Type: Spontaneous
  Country: US (occurrence: US)
  Receive Date: 20180328
  Receipt Date: 20180328
  Transmission Date: 20180509
  Serious: Yes (Other)
  Sender: FDA-Public Use
  Company Number: US-ASTRAZENECA-2018SE36196

PATIENT
  Age: 36 Year
  Sex: Female

DRUGS (3)
  1. BREO ELLIPTA [Concomitant]
     Active Substance: FLUTICASONE FUROATE\VILANTEROL TRIFENATATE
     Indication: ASTHMA
     Dates: start: 20180110, end: 20180112
  2. FASENRA [Suspect]
     Active Substance: BENRALIZUMAB
     Route: 058
  3. DECADRON [Concomitant]
     Active Substance: DEXAMETHASONE
     Dosage: FOR 1 WEEK

REACTIONS (2)
  - Lymphadenopathy [Recovered/Resolved]
  - Anaphylactic reaction [Recovered/Resolved]

NARRATIVE: CASE EVENT DATE: 20180110
